FAERS Safety Report 14995603 (Version 1)
Quarter: 2018Q2

REPORT INFORMATION
  Report Type: Spontaneous
  Country: US (occurrence: US)
  Receive Date: 20180518
  Receipt Date: 20180518
  Transmission Date: 20180711
  Serious: No
  Sender: FDA-Public Use
  Company Number: None

PATIENT
  Age: 68 Year
  Sex: Female
  Weight: 42.18 kg

DRUGS (1)
  1. PROLIA [Suspect]
     Active Substance: DENOSUMAB
     Indication: OSTEOPOROSIS
     Dosage: ?          OTHER FREQUENCY:6 MONTHS ;?
     Dates: start: 20171121

REACTIONS (3)
  - Glycosylated haemoglobin increased [None]
  - Blood triglycerides increased [None]
  - Constipation [None]

NARRATIVE: CASE EVENT DATE: 20180417
